FAERS Safety Report 13522357 (Version 2)
Quarter: 2017Q2

REPORT INFORMATION
  Report Type: Report from Study
  Country: FR (occurrence: FR)
  Receive Date: 20170508
  Receipt Date: 20170616
  Transmission Date: 20170830
  Serious: Yes (Death)
  Sender: FDA-Public Use
  Company Number: FR-PFIZER INC-2016500424

PATIENT
  Age: 52 Year
  Sex: Female

DRUGS (2)
  1. PALBOCICLIB [Suspect]
     Active Substance: PALBOCICLIB
     Indication: BREAST CANCER
     Dosage: 125 MG, DAILY
     Route: 048
     Dates: start: 20160810, end: 20160907
  2. FULVESTRANT [Concomitant]
     Active Substance: FULVESTRANT

REACTIONS (6)
  - Alanine aminotransferase increased [Unknown]
  - Haemoglobin decreased [Unknown]
  - Neoplasm progression [Fatal]
  - Aspartate aminotransferase increased [Unknown]
  - Neutrophil count decreased [Unknown]
  - Platelet count decreased [Unknown]
